FAERS Safety Report 16300723 (Version 1)
Quarter: 2019Q2

REPORT INFORMATION
  Report Type: Spontaneous
  Country: US (occurrence: US)
  Receive Date: 20190510
  Receipt Date: 20190510
  Transmission Date: 20190711
  Serious: Yes (Other)
  Sender: FDA-Public Use
  Company Number: US-PFIZER INC-2019196026

PATIENT
  Age: 50 Year
  Sex: Female

DRUGS (8)
  1. CELECOXIB. [Concomitant]
     Active Substance: CELECOXIB
     Indication: ARTHRITIS
     Dosage: 200 MG, 1X/DAY, [200 MG ONE EVERY NIGHT BY MOUTH]
     Route: 048
     Dates: start: 2017
  2. CELECOXIB. [Concomitant]
     Active Substance: CELECOXIB
     Indication: FIBROMYALGIA
  3. TRULICITY [Concomitant]
     Active Substance: DULAGLUTIDE
     Indication: DIABETES MELLITUS
     Dosage: 1.5 MG, WEEKLY, [1.5 MG ONCE A WEEK SHOT ON FRIDAYS]
     Dates: start: 2017
  4. LYRICA [Suspect]
     Active Substance: PREGABALIN
     Indication: NEUROPATHY PERIPHERAL
     Dosage: 150 MG, 2X/DAY (ONE IN MORNING AND ONE IN AFTERNOON)
     Route: 048
  5. DULOXETINE DR [Concomitant]
     Active Substance: DULOXETINE
     Indication: PAIN
     Dosage: 90 MG, DAILY (ONCE AT NIGHT 60 MG AND 30 MG DURING DAY)
     Dates: start: 2014
  6. LANTUS [Concomitant]
     Active Substance: INSULIN GLARGINE
     Indication: DIABETES MELLITUS
     Dosage: 42 IU, 1X/DAY (SUBCUTANEOUS INJECTION EACH NIGHT BY A PEN)
     Route: 058
  7. JARDIANCE [Concomitant]
     Active Substance: EMPAGLIFLOZIN
     Indication: DIABETES MELLITUS
     Dosage: 25 MG, 1X/DAY
     Dates: start: 2015
  8. DULOXETINE DR [Concomitant]
     Active Substance: DULOXETINE
     Indication: DISCOMFORT

REACTIONS (2)
  - Neuropathic arthropathy [Not Recovered/Not Resolved]
  - Foot deformity [Not Recovered/Not Resolved]

NARRATIVE: CASE EVENT DATE: 201804
